FAERS Safety Report 4457929-8 (Version None)
Quarter: 2004Q3

REPORT INFORMATION
  Report Type: 
  Country: None (occurrence: None)
  Receive Date: 20040922
  Receipt Date: 20040914
  Transmission Date: 20050211
  Serious: Yes (Hospitalization)
  Sender: FDA-Public Use
  Company Number: 2004CG01812

PATIENT
  Age: 69 Year
  Sex: Male

DRUGS (5)
  1. MOPRAL [Suspect]
     Dosage: 20 MG QD PO
     Route: 048
     Dates: start: 20030915, end: 20040826
  2. PLAVIX [Suspect]
     Dosage: 1 DF QD PO
     Dates: start: 20030915, end: 20040826
  3. ELISOR [Suspect]
     Dates: start: 20030901, end: 20040729
  4. COVERSYL [Concomitant]
  5. ASPIRIN [Concomitant]

REACTIONS (2)
  - ECZEMA [None]
  - RASH GENERALISED [None]
